FAERS Safety Report 12631301 (Version 2)
Quarter: 2016Q3

REPORT INFORMATION
  Report Type: Spontaneous
  Country: US (occurrence: US)
  Receive Date: 20160808
  Receipt Date: 20160808
  Transmission Date: 20161109
  Serious: No
  Sender: FDA-Public Use
  Company Number: US-BEH-2015053215

PATIENT
  Sex: Female
  Weight: 64 kg

DRUGS (27)
  1. HIZENTRA [Suspect]
     Active Substance: HUMAN IMMUNOGLOBULIN G
     Indication: IMMUNODEFICIENCY COMMON VARIABLE
     Dosage: 2 GM 10 ML VIAL
     Route: 058
  2. EPIPEN [Concomitant]
     Active Substance: EPINEPHRINE
  3. NEXIUM [Concomitant]
     Active Substance: ESOMEPRAZOLE MAGNESIUM
  4. ACETAMINOPHEN. [Concomitant]
     Active Substance: ACETAMINOPHEN
  5. SYNTHROID [Concomitant]
     Active Substance: LEVOTHYROXINE SODIUM
  6. IMITREX [Concomitant]
     Active Substance: SUMATRIPTAN SUCCINATE
  7. CYMBALTA [Concomitant]
     Active Substance: DULOXETINE HYDROCHLORIDE
  8. AMBIEN [Concomitant]
     Active Substance: ZOLPIDEM TARTRATE
  9. CALCIUM [Concomitant]
     Active Substance: CALCIUM
  10. HIZENTRA [Suspect]
     Active Substance: HUMAN IMMUNOGLOBULIN G
     Dosage: 1 GM 5 ML VIAL
     Route: 058
  11. ACYCLOVIR. [Concomitant]
     Active Substance: ACYCLOVIR
  12. PERCOCET [Concomitant]
     Active Substance: ACETAMINOPHEN\OXYCODONE HYDROCHLORIDE
  13. DIPHENHYDRAMINE. [Concomitant]
     Active Substance: DIPHENHYDRAMINE
  14. VALIUM [Concomitant]
     Active Substance: DIAZEPAM
  15. WELLBUTRIN [Concomitant]
     Active Substance: BUPROPION HYDROCHLORIDE
  16. PROCRIT [Concomitant]
     Active Substance: ERYTHROPOIETIN
  17. HIZENTRA [Suspect]
     Active Substance: HUMAN IMMUNOGLOBULIN G
     Dosage: 4 GM 20 ML VIAL
     Route: 058
  18. LMX [Concomitant]
     Active Substance: LIDOCAINE
  19. OXYCONTIN [Concomitant]
     Active Substance: OXYCODONE HYDROCHLORIDE
  20. AMITRIPTYLINE [Concomitant]
     Active Substance: AMITRIPTYLINE
  21. LORATADINE. [Concomitant]
     Active Substance: LORATADINE
  22. MULTIVITAMIN [Concomitant]
     Active Substance: VITAMINS
  23. FISH OIL [Concomitant]
     Active Substance: FISH OIL
  24. SUDAFED [Concomitant]
     Active Substance: PSEUDOEPHEDRINE HYDROCHLORIDE
  25. MELOXICAM. [Concomitant]
     Active Substance: MELOXICAM
  26. PROAIR HFA [Concomitant]
     Active Substance: ALBUTEROL SULFATE
  27. PROVIGIL [Concomitant]
     Active Substance: MODAFINIL

REACTIONS (1)
  - Rash [Unknown]
